FAERS Safety Report 23240679 (Version 1)
Quarter: 2023Q4

REPORT INFORMATION
  Report Type: Spontaneous
  Country: None (occurrence: US)
  Receive Date: 20231129
  Receipt Date: 20231129
  Transmission Date: 20240109
  Serious: Yes (Death)
  Sender: FDA-Public Use
  Company Number: US-LGM Pharma Solutions, LLC-2148764

PATIENT
  Age: 68 Year
  Sex: Male

DRUGS (5)
  1. CHENODAL [Suspect]
     Active Substance: CHENODIOL
     Indication: Lipidosis
     Route: 048
     Dates: start: 20220806
  2. BACLOFEN [Concomitant]
     Active Substance: BACLOFEN
     Route: 065
  3. ESCITALOPRAM [Concomitant]
     Active Substance: ESCITALOPRAM OXALATE
     Route: 065
  4. AMANTADINE. [Concomitant]
     Active Substance: AMANTADINE HYDROCHLORIDE
     Route: 065
  5. Multivitamins, unspecified [Concomitant]
     Route: 065

REACTIONS (1)
  - Pneumonia aspiration [Fatal]
